FAERS Safety Report 6304749-5 (Version None)
Quarter: 2009Q3

REPORT INFORMATION
  Report Type: 
  Country: None (occurrence: None)
  Receive Date: 20090811
  Receipt Date: 20090803
  Transmission Date: 20100115
  Serious: Yes (Death)
  Sender: FDA-Public Use
  Company Number: B0585108A

PATIENT
  Sex: Male

DRUGS (6)
  1. HYCAMTIN [Suspect]
     Indication: LUNG CANCER METASTATIC
     Dosage: 4MG PER DAY
     Route: 048
     Dates: start: 20090629, end: 20090703
  2. ENOXAPARIN SODIUM [Concomitant]
     Indication: DRUG USE FOR UNKNOWN INDICATION
     Dosage: 6000IU PER DAY
     Route: 058
  3. KETOROLAC TROMETHAMINE [Concomitant]
     Indication: DRUG USE FOR UNKNOWN INDICATION
     Dosage: 120DROP PER DAY
     Route: 048
  4. ALLOPURINOL [Concomitant]
     Indication: DRUG USE FOR UNKNOWN INDICATION
     Dosage: 300MG PER DAY
     Route: 048
  5. DEXAMETHASONE SODIUM PHOSPHATE [Concomitant]
     Indication: DRUG USE FOR UNKNOWN INDICATION
     Dosage: 32DROP PER DAY
     Route: 048
  6. DILTIAZEM [Concomitant]
     Indication: DRUG USE FOR UNKNOWN INDICATION
     Dosage: 120MG PER DAY
     Route: 048

REACTIONS (2)
  - SEPSIS [None]
  - SEPTIC SHOCK [None]
